FAERS Safety Report 8470834-5 (Version None)
Quarter: 2012Q2

REPORT INFORMATION
  Report Type: 
  Country: None (occurrence: None)
  Receive Date: 20120627
  Receipt Date: 20120621
  Transmission Date: 20120825
  Serious: Yes (Death)
  Sender: FDA-Public Use
  Company Number: BE-ASTELLAS-2012EU004542

PATIENT
  Age: 28 Year
  Sex: Male

DRUGS (3)
  1. METHYLPREDNISOLONE [Suspect]
     Indication: LUNG TRANSPLANT
     Dosage: 6 MG, UNKNOWN/D
     Route: 065
  2. TACROLIMUS [Suspect]
     Indication: LUNG TRANSPLANT
     Dosage: UNK
     Route: 065
  3. AZATHIOPRINE [Suspect]
     Indication: LUNG TRANSPLANT
     Dosage: 100 MG, UNKNOWN/D
     Route: 065

REACTIONS (1)
  - HERPES ZOSTER [None]
